FAERS Safety Report 15665796 (Version 1)
Quarter: 2018Q4

REPORT INFORMATION
  Report Type: Spontaneous
  Country: CN (occurrence: CN)
  Receive Date: 20181128
  Receipt Date: 20181128
  Transmission Date: 20190205
  Serious: Yes (Other)
  Sender: FDA-Public Use
  Company Number: CN-MYLANLABS-2018M1088092

PATIENT
  Age: 51 Year
  Sex: Male

DRUGS (8)
  1. PACLITAXEL. [Suspect]
     Active Substance: PACLITAXEL
     Indication: NON-SMALL CELL LUNG CANCER STAGE IIIB
     Dosage: FIRST CYCLE OF CHEMOTHERAPY
     Route: 065
     Dates: start: 20160930
  2. PACLITAXEL. [Suspect]
     Active Substance: PACLITAXEL
     Dosage: SECOND CYCLE OF CHEMOTHERAPY
     Route: 065
  3. DEXAMETHASONE. [Concomitant]
     Active Substance: DEXAMETHASONE
     Indication: NON-SMALL CELL LUNG CANCER STAGE IIIB
     Route: 048
  4. DOCETAXEL. [Suspect]
     Active Substance: DOCETAXEL
     Indication: NON-SMALL CELL LUNG CANCER STAGE IIIB
     Route: 065
  5. CISPLATIN. [Suspect]
     Active Substance: CISPLATIN
     Indication: NON-SMALL CELL LUNG CANCER STAGE IIIB
     Dosage: FIRST CYCLE OF CHEMOTHERAPY
     Route: 065
     Dates: start: 20160930
  6. CISPLATIN. [Suspect]
     Active Substance: CISPLATIN
     Dosage: SECOND CYCLE OF CHEMOTHERAPY
     Route: 065
  7. DIPHENHYDRAMINE. [Concomitant]
     Active Substance: DIPHENHYDRAMINE
     Indication: NON-SMALL CELL LUNG CANCER STAGE IIIB
     Route: 042
  8. CIMETIDINE [Concomitant]
     Active Substance: CIMETIDINE
     Indication: NON-SMALL CELL LUNG CANCER STAGE IIIB
     Route: 042

REACTIONS (3)
  - Atrial fibrillation [Recovered/Resolved]
  - Nausea [Unknown]
  - Drug ineffective [Unknown]
